FAERS Safety Report 23157902 (Version 9)
Quarter: 2025Q1

REPORT INFORMATION
  Report Type: Spontaneous
  Country: JP (occurrence: JP)
  Receive Date: 20231108
  Receipt Date: 20250110
  Transmission Date: 20250409
  Serious: Yes (Hospitalization, Other)
  Sender: BRISTOL-MYERS SQUIBB COMPANY
  Company Number: JP-BRISTOL-MYERS SQUIBB COMPANY-2023-158424

PATIENT
  Age: 59 Year
  Sex: Female
  Weight: 39.4 kg

DRUGS (9)
  1. YERVOY [Suspect]
     Active Substance: IPILIMUMAB
     Indication: Oesophageal carcinoma
     Route: 041
     Dates: start: 20230726, end: 20230726
  2. OPDIVO [Suspect]
     Active Substance: NIVOLUMAB
     Indication: Oesophageal carcinoma
     Route: 041
     Dates: start: 20230726, end: 20230726
  3. VONOPRAZAN FUMARATE [Concomitant]
     Active Substance: VONOPRAZAN FUMARATE
     Indication: Prophylaxis
     Route: 054
     Dates: end: 20231019
  4. LOXOPROFEN [Concomitant]
     Active Substance: LOXOPROFEN
     Indication: Oesophageal carcinoma
     Route: 054
     Dates: end: 20230914
  5. MIYA-BM [Concomitant]
     Active Substance: CLOSTRIDIUM BUTYRICUM SPORES STRAIN M-55
     Indication: Prophylaxis
     Route: 054
     Dates: start: 20230830, end: 20231019
  6. CALCIUM CARBONATE\CHOLECALCIFEROL\MAGNESIUM CARBONATE [Concomitant]
     Active Substance: CALCIUM CARBONATE\CHOLECALCIFEROL\MAGNESIUM CARBONATE
     Indication: Prophylaxis
     Dosage: 2 TOTAL
     Route: 050
     Dates: start: 20230829, end: 20231019
  7. CARBOCYSTEINE [Concomitant]
     Active Substance: CARBOCYSTEINE
     Indication: Product used for unknown indication
     Route: 050
     Dates: end: 20231019
  8. DIETARY SUPPLEMENT [Concomitant]
     Active Substance: DIETARY SUPPLEMENT
     Indication: Product used for unknown indication
     Route: 050
     Dates: start: 20230831
  9. RACOL [NUTRIENTS NOS] [Concomitant]
     Indication: Product used for unknown indication
     Route: 050
     Dates: start: 20230901

REACTIONS (12)
  - Immune-mediated enterocolitis [Recovering/Resolving]
  - Gastrooesophageal reflux disease [Unknown]
  - Pneumonia aspiration [Recovering/Resolving]
  - Hypoxia [Unknown]
  - Vomiting [Unknown]
  - Tracheal fistula [Unknown]
  - Condition aggravated [Unknown]
  - Hypothyroidism [Not Recovered/Not Resolved]
  - SARS-CoV-2 test positive [Recovering/Resolving]
  - Pneumonia [Unknown]
  - Gastrointestinal oedema [Unknown]
  - Haematemesis [Unknown]

NARRATIVE: CASE EVENT DATE: 20230810
